FAERS Safety Report 5844024-6 (Version None)
Quarter: 2008Q3

REPORT INFORMATION
  Report Type: 
  Country: None (occurrence: None)
  Receive Date: 20080731
  Receipt Date: 20080331
  Transmission Date: 20090109
  Serious: No
  Sender: FDA-Public Use
  Company Number: US200804000326

PATIENT
  Age: 50 Year
  Sex: Female
  Weight: 104.3 kg

DRUGS (10)
  1. BYETTA [Suspect]
     Indication: TYPE 2 DIABETES MELLITUS
     Dosage: SEE IMAGE
     Route: 058
     Dates: start: 20070401, end: 20070701
  2. BYETTA [Suspect]
     Indication: TYPE 2 DIABETES MELLITUS
     Dosage: SEE IMAGE
     Route: 058
     Dates: start: 20070701, end: 20070901
  3. BYETTA [Suspect]
     Indication: TYPE 2 DIABETES MELLITUS
     Dosage: SEE IMAGE
     Route: 058
     Dates: start: 20070901, end: 20080301
  4. BYETTA [Suspect]
     Indication: TYPE 2 DIABETES MELLITUS
     Dosage: SEE IMAGE
     Route: 058
     Dates: start: 20080301, end: 20080327
  5. BYETTA [Suspect]
     Indication: TYPE 2 DIABETES MELLITUS
     Dosage: SEE IMAGE
     Route: 058
     Dates: start: 20080328
  6. EXENATIDE PEN, DISPOSABLE DEVICE (EXENATIDE PEN) PEN,DISPOSABLE [Concomitant]
  7. AVANDIA [Concomitant]
  8. GLUCOPHAGE [Concomitant]
  9. GLYBURIDE W/METFORMIN HYDROCHLORIDE (GLIBENCLAMIDE, METFORMIN HYDROCHL [Concomitant]
  10. MULTIVITAMIN [Concomitant]

REACTIONS (5)
  - HYPERSENSITIVITY [None]
  - INJECTION SITE HAEMATOMA [None]
  - NAUSEA [None]
  - VOMITING [None]
  - WEIGHT DECREASED [None]
